FAERS Safety Report 8877546 (Version 1)
Quarter: 2012Q4

REPORT INFORMATION
  Report Type: Spontaneous
  Country: US (occurrence: None)
  Receive Date: 20121026
  Receipt Date: 20121026
  Transmission Date: 20130627
  Serious: Yes (Death, Hospitalization, Other)
  Sender: FDA-Public Use
  Company Number: AUR-APL-2012-04523

PATIENT
  Age: 16 Year
  Sex: Female

DRUGS (1)
  1. MINOCYCLINE [Suspect]
     Indication: ACNE

REACTIONS (18)
  - Cardiogenic shock [None]
  - Pyrexia [None]
  - Malaise [None]
  - Fatigue [None]
  - Urticaria [None]
  - Lymphadenopathy [None]
  - Rash maculo-papular [None]
  - Hepatic enzyme increased [None]
  - Pulmonary embolism [None]
  - Hypotension [None]
  - Bacteraemia [None]
  - Fungaemia [None]
  - Multi-organ failure [None]
  - Hepatic failure [None]
  - Renal failure [None]
  - Colitis ischaemic [None]
  - Drug reaction with eosinophilia and systemic symptoms [None]
  - Eosinophilic myocarditis [None]
